FAERS Safety Report 7310830-4 (Version None)
Quarter: 2011Q1

REPORT INFORMATION
  Report Type: 
  Country: None (occurrence: None)
  Receive Date: 20110224
  Receipt Date: 20110209
  Transmission Date: 20110831
  Serious: No
  Sender: FDA-Public Use
  Company Number: US-PFIZER INC-US-WYE-H17605410

PATIENT
  Sex: Female
  Weight: 83.9 kg

DRUGS (8)
  1. HYDROCHLOROTHIAZIDE [Concomitant]
  2. PRISTIQ [Suspect]
     Indication: DEPRESSION
     Dosage: 50.0 MG, 1X/DAY
     Route: 065
     Dates: start: 20100908
  3. PERCOCET [Concomitant]
  4. ZOLOFT [Suspect]
  5. VITAMIN B-12 [Concomitant]
  6. LORAZEPAM [Concomitant]
  7. BUSPAR [Concomitant]
  8. MULTI-VITAMINS [Concomitant]

REACTIONS (3)
  - ANXIETY [None]
  - WRONG TECHNIQUE IN DRUG USAGE PROCESS [None]
  - NERVOUSNESS [None]
